FAERS Safety Report 24220337 (Version 1)
Quarter: 2024Q3

REPORT INFORMATION
  Report Type: Spontaneous
  Country: ES (occurrence: ES)
  Receive Date: 20240818
  Receipt Date: 20240818
  Transmission Date: 20241016
  Serious: Yes (Other)
  Sender: SANOFI AVENTIS
  Company Number: None

PATIENT
  Age: 44 Year
  Sex: Male

DRUGS (3)
  1. FABRAZYME [Suspect]
     Active Substance: AGALSIDASE BETA
     Indication: Fabry^s disease
     Dosage: 60 MG, QD
     Route: 042
     Dates: start: 20240605, end: 20240705
  2. OLMESARTAN [Concomitant]
     Active Substance: OLMESARTAN
     Indication: Fabry^s disease
     Dosage: 10 MG, QD
     Route: 048
     Dates: start: 20240627
  3. ENALAPRIL [Concomitant]
     Active Substance: ENALAPRIL
     Indication: Fabry^s disease
     Dosage: 10 MG, QD
     Route: 048
     Dates: start: 20240626

REACTIONS (2)
  - Tongue oedema [Recovered/Resolved]
  - Rash [Recovered/Resolved]

NARRATIVE: CASE EVENT DATE: 20240705
